FAERS Safety Report 13616046 (Version 2)
Quarter: 2018Q2

REPORT INFORMATION
  Report Type: Spontaneous
  Country: US (occurrence: US)
  Receive Date: 20170606
  Receipt Date: 20180521
  Transmission Date: 20180711
  Serious: No
  Sender: FDA-Public Use
  Company Number: US-TEVA-742551ACC

PATIENT
  Sex: Male
  Weight: 72.57 kg

DRUGS (1)
  1. CYCLOBENZAPRINE. [Suspect]
     Active Substance: CYCLOBENZAPRINE
     Indication: NECK PAIN
     Dosage: 30 MILLIGRAM DAILY;
     Route: 048
     Dates: start: 20160817, end: 20160821

REACTIONS (2)
  - Neck pain [Recovered/Resolved]
  - Dizziness [Recovered/Resolved]
